FAERS Safety Report 7347883-3 (Version None)
Quarter: 2011Q1

REPORT INFORMATION
  Report Type: 
  Country: None (occurrence: None)
  Receive Date: 20110311
  Receipt Date: 20110304
  Transmission Date: 20110831
  Serious: Yes (Other)
  Sender: FDA-Public Use
  Company Number: US-JNJFOC-20110302655

PATIENT
  Sex: Female
  Weight: 102.51 kg

DRUGS (6)
  1. DOXIL [Suspect]
     Route: 042
  2. UNSPECIFIED THYROID REPLACEMENT [Concomitant]
     Indication: THYROIDECTOMY
     Route: 048
  3. DOXIL [Suspect]
     Indication: OVARIAN CANCER
     Route: 042
  4. NEURONTIN [Concomitant]
     Indication: HERPES ZOSTER
     Route: 048
  5. PROZAC [Concomitant]
     Indication: ANXIETY
     Route: 048
  6. BLOOD PRESSURE MEDICATION NOS [Concomitant]
     Indication: BLOOD PRESSURE
     Route: 048

REACTIONS (3)
  - SKIN TOXICITY [None]
  - HERPES ZOSTER [None]
  - BLISTER [None]
